FAERS Safety Report 8769339 (Version 4)
Quarter: 2014Q2

REPORT INFORMATION
  Report Type: Spontaneous
  Country: US (occurrence: US)
  Receive Date: 20120905
  Receipt Date: 20140403
  Transmission Date: 20141212
  Serious: Yes (Hospitalization, Other)
  Sender: FDA-Public Use
  Company Number: US-009507513-1206USA00018

PATIENT
  Sex: Female
  Weight: 56.24 kg

DRUGS (12)
  1. FOSAMAX [Suspect]
     Indication: OSTEOPENIA
     Dosage: 70 MG, QW
     Route: 048
     Dates: start: 200701, end: 201202
  2. FOSAMAX [Suspect]
     Dosage: 10 MG, QD
     Route: 048
     Dates: start: 19961202
  3. FOSAMAX [Suspect]
     Dosage: 70 MG, QW
     Route: 048
     Dates: start: 20080220
  4. METFORMIN HYDROCHLORIDE [Concomitant]
     Dosage: 500 MG, QD
     Dates: start: 20070226
  5. VERAPAMIL HYDROCHLORIDE [Concomitant]
     Dosage: 240 MG, QD
     Dates: start: 20070226
  6. LESCOL XL [Concomitant]
     Dosage: 80 MG, QD
     Dates: start: 20070226
  7. LEVOTHYROXINE SODIUM [Concomitant]
     Dosage: 150 MICROGRAM, QD
     Dates: start: 20070126
  8. HYDROCHLOROTHIAZIDE (+) LISINOPRIL [Concomitant]
     Dosage: 25 MG, QD
     Dates: start: 20070226
  9. IBUPROFEN [Concomitant]
     Dosage: 600 MG, UNK
     Dates: start: 20070226
  10. NORVASC [Concomitant]
     Dosage: 5 MG, QD
  11. ZOCOR [Concomitant]
     Dosage: 20 MG, QD
  12. PREMPRO [Concomitant]
     Indication: OSTEOPOROSIS
     Dosage: 0.625 MG, UNK
     Dates: end: 199812

REACTIONS (25)
  - Open reduction of fracture [Recovering/Resolving]
  - Femur fracture [Recovering/Resolving]
  - Low turnover osteopathy [Unknown]
  - Rhinorrhoea [Unknown]
  - Oropharyngeal pain [Unknown]
  - Bronchitis [Unknown]
  - Osteoarthritis [Unknown]
  - Bladder spasm [Unknown]
  - Lumbar spinal stenosis [Not Recovered/Not Resolved]
  - Obesity [Unknown]
  - Spondylolisthesis [Not Recovered/Not Resolved]
  - Urinary tract infection [Unknown]
  - Anaemia [Unknown]
  - Paranasal sinus hypersecretion [Unknown]
  - Bronchitis [Unknown]
  - Mitral valve incompetence [Unknown]
  - Pericardial effusion [Unknown]
  - Diastolic dysfunction [Unknown]
  - Aortic valve incompetence [Unknown]
  - Diverticulum [Unknown]
  - Arthritis [Unknown]
  - Lumbar radiculopathy [Unknown]
  - Asthma [Unknown]
  - Blood calcium decreased [Unknown]
  - Gastrooesophageal reflux disease [Unknown]
